FAERS Safety Report 9948907 (Version 4)
Quarter: 2014Q2

REPORT INFORMATION
  Report Type: Spontaneous
  Country: JP (occurrence: JP)
  Receive Date: 20140304
  Receipt Date: 20140403
  Transmission Date: 20141212
  Serious: Yes (Hospitalization)
  Sender: FDA-Public Use
  Company Number: JP-CELGENEUS-087-21880-14024078

PATIENT
  Age: 74 Year
  Sex: Male
  Weight: 63.7 kg

DRUGS (16)
  1. REVLIMID [Suspect]
     Indication: PLASMA CELL MYELOMA
     Route: 048
     Dates: start: 20140204, end: 20140216
  2. REVLIMID [Suspect]
     Route: 048
     Dates: start: 20140220, end: 20140220
  3. BLINDED MLN9708 [Suspect]
     Indication: PLASMA CELL MYELOMA
     Route: 048
     Dates: start: 20140204, end: 20140218
  4. LENADEX [Suspect]
     Indication: PLASMA CELL MYELOMA
     Dosage: 40 MILLIGRAM
     Route: 048
     Dates: start: 20140204, end: 20140218
  5. OXYCONTIN [Concomitant]
     Indication: CONSTIPATION
     Dosage: 10 MILLIGRAM
     Route: 065
  6. OXYCONTIN [Concomitant]
     Indication: PLASMA CELL MYELOMA
  7. BAYASPIRIN [Concomitant]
     Indication: THROMBOSIS PROPHYLAXIS
     Dosage: 100 MILLIGRAM
     Route: 048
     Dates: start: 20140204
  8. LYRICA [Concomitant]
     Indication: NEUROPATHY PERIPHERAL
     Dosage: 75 MILLIGRAM
     Route: 065
  9. CRESTOR [Concomitant]
     Indication: DYSLIPIDAEMIA
     Dosage: 2.5 MILLIGRAM
     Route: 048
  10. LOXONIN [Concomitant]
     Indication: PLASMA CELL MYELOMA
     Dosage: 180 MILLIGRAM
     Route: 048
  11. LENDORMIN D [Concomitant]
     Indication: INSOMNIA
     Route: 048
  12. OXINORM [Concomitant]
     Indication: PAIN
     Route: 048
  13. MAGMITT [Concomitant]
     Indication: CONSTIPATION
     Route: 048
     Dates: start: 201401, end: 20140211
  14. AZUNOL [Concomitant]
     Indication: OROPHARYNGEAL PAIN
     Route: 049
  15. SENNOSIDE [Concomitant]
     Indication: CONSTIPATION
     Route: 048
     Dates: start: 20140211
  16. HARNAL D [Concomitant]
     Indication: BENIGN PROSTATIC HYPERPLASIA
     Dosage: .2 MILLIGRAM
     Route: 065

REACTIONS (2)
  - Rash [Recovered/Resolved]
  - Ileus paralytic [Recovered/Resolved]
